FAERS Safety Report 5372271-9 (Version None)
Quarter: 2007Q2

REPORT INFORMATION
  Report Type: 
  Country: None (occurrence: None)
  Receive Date: 20070620
  Receipt Date: 20070219
  Transmission Date: 20071010
  Serious: No
  Sender: FDA-Public Use
  Company Number: 2007RL000068

PATIENT
  Age: 61 Year
  Sex: Female
  Weight: 61.2356 kg

DRUGS (8)
  1. OMACOR [Suspect]
     Indication: BLOOD TRIGLYCERIDES INCREASED
     Dosage: 2 GM;QD;PO  3 GM;QD;PO   2 GM;QD;PO   3 GM;QD;PO   4 GM;QD;PO
     Route: 048
     Dates: start: 20060101, end: 20060101
  2. OMACOR [Suspect]
     Indication: BLOOD TRIGLYCERIDES INCREASED
     Dosage: 2 GM;QD;PO  3 GM;QD;PO   2 GM;QD;PO   3 GM;QD;PO   4 GM;QD;PO
     Route: 048
     Dates: start: 20060101, end: 20060101
  3. OMACOR [Suspect]
     Indication: BLOOD TRIGLYCERIDES INCREASED
     Dosage: 2 GM;QD;PO  3 GM;QD;PO   2 GM;QD;PO   3 GM;QD;PO   4 GM;QD;PO
     Route: 048
     Dates: start: 20060101, end: 20060101
  4. OMACOR [Suspect]
     Indication: BLOOD TRIGLYCERIDES INCREASED
     Dosage: 2 GM;QD;PO  3 GM;QD;PO   2 GM;QD;PO   3 GM;QD;PO   4 GM;QD;PO
     Route: 048
     Dates: start: 20060201, end: 20060101
  5. OMACOR [Suspect]
     Indication: BLOOD TRIGLYCERIDES INCREASED
     Dosage: 2 GM;QD;PO  3 GM;QD;PO   2 GM;QD;PO   3 GM;QD;PO   4 GM;QD;PO
     Route: 048
     Dates: start: 20060601
  6. CRESTOR [Concomitant]
  7. LISINOPRIL [Concomitant]
  8. PREMARIN [Concomitant]

REACTIONS (4)
  - CATARACT [None]
  - EYE DISCHARGE [None]
  - INFLUENZA LIKE ILLNESS [None]
  - LACRIMATION INCREASED [None]
